FAERS Safety Report 25354938 (Version 1)
Quarter: 2025Q2

REPORT INFORMATION
  Report Type: Spontaneous
  Country: US (occurrence: US)
  Receive Date: 20250524
  Receipt Date: 20250524
  Transmission Date: 20250717
  Serious: Yes (Hospitalization)
  Sender: ACCORD
  Company Number: US-MLMSERVICE-20250507-PI486351-00271-1

PATIENT
  Age: 59 Year
  Sex: Male

DRUGS (18)
  1. METHOTREXATE [Suspect]
     Active Substance: METHOTREXATE
     Indication: Diffuse large B-cell lymphoma stage IV
  2. RITUXIMAB [Suspect]
     Active Substance: RITUXIMAB
     Indication: Diffuse large B-cell lymphoma stage IV
  3. CYCLOPHOSPHAMIDE [Suspect]
     Active Substance: CYCLOPHOSPHAMIDE
     Indication: Diffuse large B-cell lymphoma stage IV
  4. VINCRISTINE SULFATE [Suspect]
     Active Substance: VINCRISTINE SULFATE
     Indication: Diffuse large B-cell lymphoma stage IV
  5. DOXORUBICIN HYDROCHLORIDE [Suspect]
     Active Substance: DOXORUBICIN HYDROCHLORIDE
     Indication: Diffuse large B-cell lymphoma stage IV
  6. PREDNISONE [Suspect]
     Active Substance: PREDNISONE
     Indication: Diffuse large B-cell lymphoma stage IV
  7. RITUXIMAB [Suspect]
     Active Substance: RITUXIMAB
     Indication: Neuroendocrine tumour
  8. CYCLOPHOSPHAMIDE [Suspect]
     Active Substance: CYCLOPHOSPHAMIDE
     Indication: Neuroendocrine tumour
  9. RITUXIMAB [Suspect]
     Active Substance: RITUXIMAB
     Indication: Pituitary tumour
  10. CYCLOPHOSPHAMIDE [Suspect]
     Active Substance: CYCLOPHOSPHAMIDE
     Indication: Pituitary tumour
  11. VINCRISTINE SULFATE [Suspect]
     Active Substance: VINCRISTINE SULFATE
     Indication: Neuroendocrine tumour
  12. VINCRISTINE SULFATE [Suspect]
     Active Substance: VINCRISTINE SULFATE
     Indication: Pituitary tumour
  13. DOXORUBICIN HYDROCHLORIDE [Suspect]
     Active Substance: DOXORUBICIN HYDROCHLORIDE
     Indication: Pituitary tumour
  14. DOXORUBICIN HYDROCHLORIDE [Suspect]
     Active Substance: DOXORUBICIN HYDROCHLORIDE
     Indication: Neuroendocrine tumour
  15. PREDNISONE [Suspect]
     Active Substance: PREDNISONE
     Indication: Pituitary tumour
  16. METHOTREXATE [Suspect]
     Active Substance: METHOTREXATE
     Indication: Pituitary tumour
  17. PREDNISONE [Suspect]
     Active Substance: PREDNISONE
     Indication: Neuroendocrine tumour
  18. METHOTREXATE [Suspect]
     Active Substance: METHOTREXATE
     Indication: Neuroendocrine tumour

REACTIONS (5)
  - Pneumonia legionella [Recovering/Resolving]
  - Febrile neutropenia [Recovering/Resolving]
  - Hypertransaminasaemia [Recovered/Resolved]
  - Hypotension [Recovering/Resolving]
  - Tachycardia [Recovering/Resolving]
